FAERS Safety Report 25778786 (Version 1)
Quarter: 2025Q3

REPORT INFORMATION
  Report Type: Spontaneous
  Country: CH (occurrence: CH)
  Receive Date: 20250909
  Receipt Date: 20250909
  Transmission Date: 20251021
  Serious: Yes (Hospitalization)
  Sender: NOVO NORDISK
  Company Number: CH-NOVOPROD-1513779

PATIENT
  Sex: Female
  Weight: 3.82 kg

DRUGS (4)
  1. OZEMPIC [Suspect]
     Active Substance: SEMAGLUTIDE
     Indication: Type 2 diabetes mellitus
     Route: 064
     Dates: end: 202410
  2. OZEMPIC [Suspect]
     Active Substance: SEMAGLUTIDE
     Indication: Obesity
  3. INSULIN NOS [Suspect]
     Active Substance: INSULIN NOS
     Indication: Insulin resistance
     Route: 064
     Dates: end: 20250605
  4. EUTHYROX [Concomitant]
     Active Substance: LEVOTHYROXINE SODIUM
     Indication: Hypothyroidism
     Route: 064
     Dates: end: 20250605

REACTIONS (2)
  - Adverse event [Unknown]
  - Foetal exposure during pregnancy [Recovered/Resolved]
